FAERS Safety Report 18307365 (Version 1)
Quarter: 2020Q3

REPORT INFORMATION
  Report Type: Report from Study
  Country: BR (occurrence: BR)
  Receive Date: 20200924
  Receipt Date: 20200924
  Transmission Date: 20201103
  Serious: Yes (Other)
  Sender: FDA-Public Use
  Company Number: BR-UCBSA-2020036661

PATIENT
  Age: 71 Year
  Sex: Female
  Weight: 72 kg

DRUGS (5)
  1. CERTOLIZUMAB PEGOL RA [Suspect]
     Active Substance: CERTOLIZUMAB PEGOL
     Indication: RHEUMATOID ARTHRITIS
     Dosage: 400 MILLIGRAM, EV 15 DAYS
     Route: 058
     Dates: start: 20200901
  2. FORXIGA [Concomitant]
     Active Substance: DAPAGLIFLOZIN
     Indication: DIABETES MELLITUS
     Dosage: 10 MILLIGRAM, UNK
     Route: 048
  3. DIPIRONA [Concomitant]
     Active Substance: METAMIZOLE
     Indication: ANALGESIC THERAPY
     Dosage: UNK, 2X/DAY (BID)
     Route: 048
  4. DIOVAN [Concomitant]
     Active Substance: VALSARTAN
     Indication: DIABETES MELLITUS
     Dosage: 320 MILLIGRAM, UNK
     Route: 048
  5. DIAMICRON [Concomitant]
     Active Substance: GLICLAZIDE
     Indication: HYPERTENSION
     Dosage: 60 MILLIGRAM, UNK
     Route: 048

REACTIONS (1)
  - Mass [Recovering/Resolving]

NARRATIVE: CASE EVENT DATE: 202009
